FAERS Safety Report 5660538-6 (Version None)
Quarter: 2008Q1

REPORT INFORMATION
  Report Type: 
  Country: None (occurrence: None)
  Receive Date: 20080311
  Receipt Date: 20071108
  Transmission Date: 20080703
  Serious: No
  Sender: FDA-Public Use
  Company Number: US-BAYER-200713695BCC

PATIENT
  Age: 86 Year
  Sex: Female
  Weight: 66 kg

DRUGS (6)
  1. ALEVE [Suspect]
     Indication: DRUG USE FOR UNKNOWN INDICATION
     Dosage: TOTAL DAILY DOSE: 220 MG  UNIT DOSE: 220 MG
     Route: 048
     Dates: start: 20071107, end: 20071107
  2. GLAUCOMA MEDICINE [Concomitant]
  3. CALCIUM-MAGNESIUM [Concomitant]
  4. VITAMIN B-12 [Concomitant]
  5. VITAMIN D [Concomitant]
  6. VITAMIN E [Concomitant]

REACTIONS (1)
  - GLOSSODYNIA [None]
